FAERS Safety Report 8079916-3 (Version None)
Quarter: 2012Q1

REPORT INFORMATION
  Report Type: 
  Country: None (occurrence: None)
  Receive Date: 20120128
  Receipt Date: 20110722
  Transmission Date: 20120608
  Serious: Yes (Other)
  Sender: FDA-Public Use
  Company Number: US-ABBOTT-11P-163-0841194-00

PATIENT
  Age: 59 Year
  Sex: Female

DRUGS (14)
  1. PREVACID [Concomitant]
     Indication: GASTROOESOPHAGEAL REFLUX DISEASE
     Dosage: AT BEDTIME
  2. TOPROL-XL [Concomitant]
     Indication: PALPITATIONS
  3. RESTASIS [Concomitant]
     Indication: DRY EYE
  4. TRAMADOL HCL [Concomitant]
     Indication: ARTHRALGIA
     Dosage: UP TO 4 A DAY
  5. HUMIRA [Suspect]
     Dates: start: 20110701
  6. ZOCOR [Concomitant]
     Indication: BLOOD CHOLESTEROL INCREASED
     Dosage: AT BEDTIME
  7. MILK OF MAGNESIA TAB [Concomitant]
     Indication: CONSTIPATION
  8. PLAQUENIL [Concomitant]
     Indication: CONNECTIVE TISSUE DISORDER
  9. WELLBUTRIN XL [Concomitant]
     Indication: DEPRESSION
  10. MAXALT [Concomitant]
     Indication: MIGRAINE
  11. TRAZODONE HCL [Concomitant]
     Indication: INSOMNIA
     Dosage: AT BEDTIME
  12. SYNTHROID [Concomitant]
     Indication: HYPOTHYROIDISM
  13. HUMIRA [Suspect]
     Indication: RHEUMATOID ARTHRITIS
     Dates: start: 20110401, end: 20110601
  14. ASPIRIN [Concomitant]
     Indication: PRODUCT USED FOR UNKNOWN INDICATION

REACTIONS (2)
  - ENDOMETRIAL CANCER [None]
  - DRUG INEFFECTIVE [None]
